FAERS Safety Report 5763645-2 (Version None)
Quarter: 2008Q2

REPORT INFORMATION
  Report Type: 
  Country: None (occurrence: None)
  Receive Date: 20080610
  Receipt Date: 20080103
  Transmission Date: 20081010
  Serious: No
  Sender: FDA-Public Use
  Company Number: US-BAYER-200810250NA

PATIENT
  Age: 23 Year
  Sex: Female
  Weight: 59 kg

DRUGS (2)
  1. MIRENA [Suspect]
     Indication: CONTRACEPTION
     Route: 015
     Dates: start: 20060301
  2. SARAFEM [Concomitant]
     Indication: DRUG USE FOR UNKNOWN INDICATION
     Dates: start: 20070801

REACTIONS (6)
  - ALOPECIA [None]
  - BACK PAIN [None]
  - BREAST TENDERNESS [None]
  - DEPRESSION [None]
  - MENSTRUATION IRREGULAR [None]
  - MOOD SWINGS [None]
